FAERS Safety Report 9078682 (Version 1)
Quarter: 2013Q1

REPORT INFORMATION
  Report Type: Spontaneous
  Country: US (occurrence: US)
  Receive Date: 20130130
  Receipt Date: 20130130
  Transmission Date: 20140127
  Serious: Yes (Other)
  Sender: FDA-Public Use
  Company Number: US-RB-049271-13

PATIENT
  Age: 58 Year
  Sex: Female

DRUGS (3)
  1. MUCINEX FAST-MAX COLD AND SINUS [Suspect]
     Indication: PRODUCT USED FOR UNKNOWN INDICATION
     Dosage: TOOK 2 CAPLETS ON ON 15-JAN-2013
     Route: 048
     Dates: start: 20130115
  2. MUCINEX SINUS-MAX DAY NIGHT MAXIMUM STRENGTH [Suspect]
  3. MUCINEX SINUS-MAX DAY NIGHT MAXIMUM STRENGTH [Suspect]

REACTIONS (5)
  - Restless legs syndrome [Recovered/Resolved]
  - Heart rate increased [Recovered/Resolved]
  - Nervousness [Recovered/Resolved]
  - Insomnia [Recovered/Resolved]
  - Dizziness [Recovered/Resolved]
